FAERS Safety Report 25753276 (Version 1)
Quarter: 2025Q3

REPORT INFORMATION
  Report Type: Report from Study
  Country: CA (occurrence: CA)
  Receive Date: 20250903
  Receipt Date: 20250903
  Transmission Date: 20251020
  Serious: Yes (Other)
  Sender: ABBVIE
  Company Number: CA-ABBVIE-6435508

PATIENT
  Age: 43 Year
  Sex: Female

DRUGS (2)
  1. RINVOQ [Suspect]
     Active Substance: UPADACITINIB
     Indication: Colitis ulcerative
     Dosage: DOSE FORM: TABLET
     Route: 048
  2. PREDNISONE [Suspect]
     Active Substance: PREDNISONE
     Indication: Product used for unknown indication
     Route: 065

REACTIONS (14)
  - Suicidal ideation [Unknown]
  - Colitis ulcerative [Unknown]
  - Alopecia [Unknown]
  - Blood iron decreased [Unknown]
  - Human papillomavirus reactivation [Not Recovered/Not Resolved]
  - Visual impairment [Unknown]
  - Swelling face [Unknown]
  - Tooth discolouration [Unknown]
  - Rectal haemorrhage [Unknown]
  - Abdominal pain [Unknown]
  - Mucous stools [Unknown]
  - Impaired work ability [Unknown]
  - Impaired work ability [Unknown]
  - Social problem [Unknown]

NARRATIVE: CASE EVENT DATE: 20250101
